FAERS Safety Report 4415626-9 (Version None)
Quarter: 2004Q3

REPORT INFORMATION
  Report Type: 
  Country: None (occurrence: None)
  Receive Date: 20040730
  Receipt Date: 20040722
  Transmission Date: 20050211
  Serious: Yes (Hospitalization)
  Sender: FDA-Public Use
  Company Number: US-JNJFOC-20040606992

PATIENT
  Age: 11 Year
  Sex: Male
  Weight: 44.4525 kg

DRUGS (3)
  1. RISPERDAL [Suspect]
     Indication: MAJOR DEPRESSION
     Dosage: 0.5 MG , 2 IN 1 DAY, ORAL : 0.5 MG, 1 IN 1 DAY, ORAL
     Route: 048
     Dates: start: 20040407, end: 20040420
  2. RISPERDAL [Suspect]
     Indication: MAJOR DEPRESSION
     Dosage: 0.5 MG , 2 IN 1 DAY, ORAL : 0.5 MG, 1 IN 1 DAY, ORAL
     Route: 048
     Dates: start: 20040421, end: 20040606
  3. ZOLOFT [Concomitant]

REACTIONS (2)
  - DIABETES MELLITUS INSULIN-DEPENDENT [None]
  - SEDATION [None]
